FAERS Safety Report 25992761 (Version 1)
Quarter: 2025Q4

REPORT INFORMATION
  Report Type: Report from Study
  Country: GB (occurrence: GB)
  Receive Date: 20251103
  Receipt Date: 20251103
  Transmission Date: 20260117
  Serious: Yes (Other)
  Sender: ABBVIE
  Company Number: GB-ABBVIE-6525618

PATIENT
  Sex: Male

DRUGS (1)
  1. RINVOQ [Suspect]
     Active Substance: UPADACITINIB
     Indication: Dermatitis atopic
     Dosage: RINVOQ 15MG MODIFIED-RELEASE TABLETS, 28 TABLET 4 X 7 TABLETS
     Route: 048
     Dates: end: 202510

REACTIONS (1)
  - Surgery [Unknown]
